FAERS Safety Report 7246355-4 (Version None)
Quarter: 2011Q1

REPORT INFORMATION
  Report Type: 
  Country: None (occurrence: None)
  Receive Date: 20110126
  Receipt Date: 20110120
  Transmission Date: 20110831
  Serious: Yes (Other)
  Sender: FDA-Public Use
  Company Number: US-PFIZER INC-2011014759

PATIENT
  Sex: Female
  Weight: 58.957 kg

DRUGS (10)
  1. LAMICTAL [Concomitant]
     Dosage: 200 MG, 2X/DAY
  2. SEROQUEL [Concomitant]
     Dosage: 50 MG, UNK
  3. KEPPRA [Concomitant]
     Dosage: 1000 MG, DAILY
  4. TRILEPTAL [Concomitant]
     Indication: CONVULSION
     Dosage: 600 MG, DAILY
  5. ATIVAN [Concomitant]
     Dosage: 1 MG, UNK
  6. RISPERDAL [Suspect]
     Indication: SCHIZOAFFECTIVE DISORDER
     Dosage: 6 MG, UNK
  7. CELEXA [Concomitant]
     Dosage: 60 MG, UNK
  8. ASENAPINE [Suspect]
     Indication: SCHIZOAFFECTIVE DISORDER
     Dosage: UNK
     Dates: start: 20100101, end: 20100101
  9. TRAZODONE [Concomitant]
     Dosage: 300 MG, UNK
  10. GEODON [Suspect]
     Indication: SCHIZOAFFECTIVE DISORDER
     Dosage: 40 MG IN AM, 60 MG IN PM
     Route: 048
     Dates: start: 20101101

REACTIONS (6)
  - PARANOIA [None]
  - THINKING ABNORMAL [None]
  - ANXIETY [None]
  - DRUG INEFFECTIVE [None]
  - DEPRESSION [None]
  - SUICIDAL IDEATION [None]
